FAERS Safety Report 23563072 (Version 13)
Quarter: 2025Q2

REPORT INFORMATION
  Report Type: Spontaneous
  Country: US (occurrence: US)
  Receive Date: 20240226
  Receipt Date: 20250630
  Transmission Date: 20250716
  Serious: Yes (Hospitalization)
  Sender: SANOFI AVENTIS
  Company Number: US-SA-SAC20240111000351

PATIENT
  Age: 39 Year
  Sex: Female

DRUGS (17)
  1. DUPIXENT [Suspect]
     Active Substance: DUPILUMAB
     Indication: Nasal polyps
     Dosage: 300 MG, QOW
     Route: 058
     Dates: start: 202307
  2. DUPIXENT [Suspect]
     Active Substance: DUPILUMAB
     Indication: Immunodeficiency common variable
  3. DUPIXENT [Suspect]
     Active Substance: DUPILUMAB
     Indication: Riley-Day syndrome
  4. PRIVIGEN [Suspect]
     Active Substance: HUMAN IMMUNOGLOBULIN G
     Indication: Immunodeficiency common variable
  5. ONDANSETRON HYDROCHLORIDE [Concomitant]
     Active Substance: ONDANSETRON HYDROCHLORIDE
  6. METHYLPREDNISOLONE HEMISUCCINATE [Concomitant]
     Active Substance: METHYLPREDNISOLONE HEMISUCCINATE
  7. DIPHENHYDRAMINE [Concomitant]
     Active Substance: DIPHENHYDRAMINE
  8. HEPARIN [Concomitant]
     Active Substance: HEPARIN SODIUM
  9. DEXTROSE [Concomitant]
     Active Substance: DEXTROSE MONOHYDRATE
  10. CATHFLO ACTIVASE [Concomitant]
     Active Substance: ALTEPLASE
  11. SODIUM CHLORIDE [Concomitant]
     Active Substance: SODIUM CHLORIDE
  12. BACTERIOSTATIC WATER [Concomitant]
     Active Substance: WATER
  13. STERILE WATER [Concomitant]
     Active Substance: WATER
  14. FAMOTIDINE [Concomitant]
     Active Substance: FAMOTIDINE
  15. ACETAMINOPHEN [Concomitant]
     Active Substance: ACETAMINOPHEN
  16. EPINEPHRINE [Concomitant]
     Active Substance: EPINEPHRINE
  17. DOXYCYCLINE [Concomitant]
     Active Substance: DOXYCYCLINE

REACTIONS (11)
  - Hospitalisation [Unknown]
  - Illness [Unknown]
  - Infection [Unknown]
  - Pain [Unknown]
  - Infusion related reaction [Unknown]
  - Bronchitis [Unknown]
  - Headache [Unknown]
  - Sinusitis [Unknown]
  - Pruritus [Unknown]
  - Nasal polyps [Unknown]
  - Product use in unapproved indication [Unknown]

NARRATIVE: CASE EVENT DATE: 20230701
